FAERS Safety Report 7067784-8 (Version None)
Quarter: 2010Q4

REPORT INFORMATION
  Report Type: 
  Country: None (occurrence: None)
  Receive Date: 20101028
  Receipt Date: 20100901
  Transmission Date: 20110411
  Serious: No
  Sender: FDA-Public Use
  Company Number: A0864037A

PATIENT
  Age: 55 Year
  Sex: Female

DRUGS (2)
  1. SEREVENT [Suspect]
     Indication: PRODUCT USED FOR UNKNOWN INDICATION
     Dosage: 1PUFF TWICE PER DAY
     Route: 055
     Dates: start: 20070301
  2. FLOVENT [Concomitant]

REACTIONS (2)
  - INHALATION THERAPY [None]
  - PRODUCT QUALITY ISSUE [None]
